FAERS Safety Report 15931276 (Version 4)
Quarter: 2025Q4

REPORT INFORMATION
  Report Type: Spontaneous
  Country: EU (occurrence: EU)
  Receive Date: 20190207
  Receipt Date: 20251205
  Transmission Date: 20260117
  Serious: Yes (Hospitalization, Other)
  Sender: AUROBINDO
  Company Number: EU-AUROBINDO-AUR-APL-2019-006302

PATIENT
  Age: 33 Year
  Sex: Female

DRUGS (6)
  1. CITALOPRAM [Suspect]
     Active Substance: CITALOPRAM
     Indication: Depression
     Dosage: UNK
     Route: 065
  2. CITALOPRAM [Suspect]
     Active Substance: CITALOPRAM
     Indication: Fibromyalgia
  3. DIAZEPAM [Suspect]
     Active Substance: DIAZEPAM
     Indication: Fibromyalgia
     Dosage: 10 MILLIGRAM, 3 TIMES A DAY
     Route: 065
  4. DIAZEPAM [Suspect]
     Active Substance: DIAZEPAM
     Indication: Depression
  5. LORMETAZEPAM [Suspect]
     Active Substance: LORMETAZEPAM
     Indication: Fibromyalgia
     Dosage: 2 MILLIGRAM, ONCE A DAY
     Route: 065
  6. LORMETAZEPAM [Suspect]
     Active Substance: LORMETAZEPAM
     Indication: Depression

REACTIONS (3)
  - Drug dependence [Unknown]
  - Depression [Unknown]
  - Withdrawal syndrome [Unknown]

NARRATIVE: CASE EVENT DATE: 20080101
